FAERS Safety Report 9399728 (Version 2)
Quarter: 2013Q3

REPORT INFORMATION
  Report Type: Report from Study
  Country: US (occurrence: US)
  Receive Date: 20130715
  Receipt Date: 20130717
  Transmission Date: 20140515
  Serious: Yes (Hospitalization)
  Sender: FDA-Public Use
  Company Number: US-JNJFOC-20130701893

PATIENT
  Age: 13 Year
  Sex: Female
  Weight: 87.4 kg

DRUGS (15)
  1. REMICADE [Suspect]
     Indication: CROHN^S DISEASE
     Route: 042
     Dates: start: 20130416
  2. REMICADE [Suspect]
     Indication: CROHN^S DISEASE
     Route: 042
     Dates: start: 20130517
  3. REMICADE [Suspect]
     Indication: CROHN^S DISEASE
     Route: 042
     Dates: start: 20130315
  4. REMICADE [Suspect]
     Indication: CROHN^S DISEASE
     Route: 042
     Dates: start: 20130222
  5. REMICADE [Suspect]
     Indication: CROHN^S DISEASE
     Route: 042
     Dates: start: 20130125
  6. REMICADE [Suspect]
     Indication: CROHN^S DISEASE
     Route: 042
     Dates: start: 20121227
  7. REMICADE [Suspect]
     Indication: CROHN^S DISEASE
     Route: 042
     Dates: start: 20091021
  8. METHOTREXATE [Concomitant]
     Route: 065
     Dates: end: 20130114
  9. CHOLECALCIFEROL [Concomitant]
     Route: 065
  10. LANSOPRAZOLE [Concomitant]
     Route: 065
  11. SERTRALINE [Concomitant]
     Route: 065
  12. CELEXA [Concomitant]
     Route: 065
  13. NUTRITIONAL SUPPLEMENT [Concomitant]
     Indication: NUTRITIONAL SUPPLEMENTATION
     Route: 065
  14. LIDOCAINE [Concomitant]
     Route: 061
     Dates: start: 20130315
  15. LIDOCAINE [Concomitant]
     Route: 061
     Dates: start: 20121227

REACTIONS (1)
  - Suicidal ideation [Recovered/Resolved]
